FAERS Safety Report 14724085 (Version 1)
Quarter: 2018Q2

REPORT INFORMATION
  Report Type: Spontaneous
  Country: US (occurrence: US)
  Receive Date: 20180405
  Receipt Date: 20180405
  Transmission Date: 20180711
  Serious: Yes (Hospitalization, Other)
  Sender: FDA-Public Use
  Company Number: US-SA-2018SA092176

PATIENT
  Age: 59 Year
  Sex: Female

DRUGS (9)
  1. L-LYSINE [Concomitant]
     Active Substance: LYSINE
     Route: 065
  2. XANAX [Concomitant]
     Active Substance: ALPRAZOLAM
     Route: 065
  3. CYMBALTA [Concomitant]
     Active Substance: DULOXETINE HYDROCHLORIDE
     Route: 065
  4. OXYCODONE [Concomitant]
     Active Substance: OXYCODONE
     Route: 065
  5. FOSAMAX [Concomitant]
     Active Substance: ALENDRONATE SODIUM
     Route: 065
  6. LORTAB [Concomitant]
     Active Substance: ACETAMINOPHEN\HYDROCODONE BITARTRATE
  7. VITAMIN B NOS/ASCORBIC ACID/CALCIUM/RETINOL/ZINC/TOCOPHERYL ACETATE/MINERALS NOS/VITAMINS NOS [Concomitant]
  8. LEFLUNOMIDE. [Suspect]
     Active Substance: LEFLUNOMIDE
     Indication: RHEUMATOID ARTHRITIS
     Route: 048
     Dates: start: 2015
  9. XELJANZ [Suspect]
     Active Substance: TOFACITINIB CITRATE
     Indication: RHEUMATOID ARTHRITIS
     Dosage: FORM: PROLONGED-RELEASE TABLET
     Route: 048
     Dates: start: 2015

REACTIONS (17)
  - Seizure [Recovered/Resolved]
  - Abnormal faeces [Unknown]
  - Blood potassium decreased [Unknown]
  - Rectal haemorrhage [Unknown]
  - Pain [Unknown]
  - Urethritis [Unknown]
  - Foaming at mouth [Unknown]
  - Condition aggravated [Unknown]
  - Vomiting [Unknown]
  - Peripheral swelling [Unknown]
  - Cholelithiasis [Unknown]
  - Loss of personal independence in daily activities [Unknown]
  - Joint swelling [Unknown]
  - Diarrhoea [Recovered/Resolved]
  - Flatulence [Unknown]
  - Malaise [Unknown]
  - Blood sodium decreased [Unknown]
